FAERS Safety Report 5540827-6 (Version None)
Quarter: 2007Q4

REPORT INFORMATION
  Report Type: 
  Country: None (occurrence: None)
  Receive Date: 20071129
  Receipt Date: 20070425
  Transmission Date: 20080405
  Serious: Yes (Other)
  Sender: FDA-Public Use
  Company Number: US200703004516

PATIENT
  Age: 49 Year
  Sex: Male
  Weight: 99.8 kg

DRUGS (4)
  1. ZYPREXA [Suspect]
     Dosage: 20 MG,; 50 MG,
     Dates: start: 20020101, end: 20050101
  2. SEROQUEL [Concomitant]
  3. ZOLOFT [Concomitant]
  4. PREDNISONE [Concomitant]

REACTIONS (8)
  - DIABETES MELLITUS [None]
  - DIABETIC COMA [None]
  - DIABETIC KETOACIDOSIS [None]
  - HYPERGLYCAEMIA [None]
  - HYPERLIPIDAEMIA [None]
  - HYPERTENSION [None]
  - OVERDOSE [None]
  - PANCREATITIS [None]
